FAERS Safety Report 8163199-X (Version None)
Quarter: 2012Q1

REPORT INFORMATION
  Report Type: 
  Country: None (occurrence: None)
  Receive Date: 20120224
  Receipt Date: 20110418
  Transmission Date: 20120608
  Serious: No
  Sender: FDA-Public Use
  Company Number: US-PFIZER INC-K201100470

PATIENT
  Sex: Female
  Weight: 80.726 kg

DRUGS (6)
  1. EVISTA [Concomitant]
     Indication: BONE DISORDER
     Dosage: UNK
  2. FOLIC ACID [Concomitant]
     Dosage: UNK
  3. LEVOTHYROXINE SODIUM [Concomitant]
     Indication: THYROID DISORDER
     Dosage: UNK
  4. XYZAL [Concomitant]
     Indication: HYPERSENSITIVITY
     Dosage: UNK
  5. FLECTOR [Suspect]
     Indication: BACK PAIN
     Dosage: 1 PATCH QD APPLIED FOR 12 HRS
     Route: 061
     Dates: start: 20110415, end: 20110417
  6. FLECTOR [Suspect]
     Indication: MUSCULOSKELETAL DISCOMFORT

REACTIONS (1)
  - DIZZINESS [None]
